FAERS Safety Report 8307721-9 (Version None)
Quarter: 2012Q2

REPORT INFORMATION
  Report Type: 
  Country: None (occurrence: None)
  Receive Date: 20120424
  Receipt Date: 20120419
  Transmission Date: 20120825
  Serious: Yes (Other)
  Sender: FDA-Public Use
  Company Number: PHFR2012GB001751

PATIENT
  Sex: Male

DRUGS (5)
  1. HYOSCINE HBR HYT [Concomitant]
  2. AMISULPRIDE [Concomitant]
     Dosage: 400 MG, UNK
     Route: 048
  3. CLOZARIL [Suspect]
     Indication: SCHIZOPHRENIA
     Dosage: 400 MG, UNK
     Route: 048
     Dates: start: 20030101
  4. FERROUS SULFATE TAB [Concomitant]
     Indication: ANAEMIA
     Dosage: 600 MG, UNK
  5. VALPROATE SODIUM [Concomitant]
     Indication: MOOD ALTERED
     Dosage: 1000 MG, UNK
     Route: 048

REACTIONS (1)
  - MEAN CELL VOLUME DECREASED [None]
